FAERS Safety Report 13672346 (Version 1)
Quarter: 2017Q2

REPORT INFORMATION
  Report Type: Spontaneous
  Country: US (occurrence: US)
  Receive Date: 20170621
  Receipt Date: 20170621
  Transmission Date: 20170830
  Serious: No
  Sender: FDA-Public Use
  Company Number: US-ASTRAZENECA-2017SE57381

PATIENT

DRUGS (2)
  1. CRESTOR [Suspect]
     Active Substance: ROSUVASTATIN CALCIUM
     Route: 048
  2. PROPECIA [Concomitant]
     Active Substance: FINASTERIDE

REACTIONS (5)
  - Confusional state [Unknown]
  - Cognitive disorder [Unknown]
  - Mood swings [Unknown]
  - Insomnia [Unknown]
  - Amnesia [Unknown]
